FAERS Safety Report 7943790-3 (Version None)
Quarter: 2011Q4

REPORT INFORMATION
  Report Type: 
  Country: None (occurrence: None)
  Receive Date: 20111128
  Receipt Date: 20111123
  Transmission Date: 20120403
  Serious: Yes (Other)
  Sender: FDA-Public Use
  Company Number: US-ROCHE-760768

PATIENT
  Sex: Male
  Weight: 108.9 kg

DRUGS (13)
  1. NYQUIL [Concomitant]
     Indication: NASOPHARYNGITIS
  2. SULFACET-R [Concomitant]
  3. SOTRET [Suspect]
     Indication: ACNE
     Route: 048
  4. CEPHALEXIN [Concomitant]
     Indication: ACNE
  5. ACCUTANE [Suspect]
     Route: 065
  6. MINOCYCLINE HCL [Concomitant]
  7. ACCUTANE [Suspect]
     Indication: ACNE
     Route: 065
     Dates: start: 19930210, end: 19940101
  8. ACCUTANE [Suspect]
     Route: 065
     Dates: start: 19980112, end: 19980301
  9. ACCUTANE [Suspect]
     Route: 065
     Dates: start: 19960913, end: 19961101
  10. AMNESTEEM [Suspect]
     Indication: ACNE
     Route: 065
  11. ACCUTANE [Suspect]
  12. ASPIRIN [Concomitant]
     Indication: PAIN
  13. ACETAMINOPHEN [Concomitant]
     Indication: NASOPHARYNGITIS

REACTIONS (6)
  - INFLAMMATORY BOWEL DISEASE [None]
  - RECTAL ABSCESS [None]
  - COLITIS ULCERATIVE [None]
  - BLOOD CHOLESTEROL INCREASED [None]
  - DEPRESSION [None]
  - BLOOD TRIGLYCERIDES INCREASED [None]
